FAERS Safety Report 5683577-8 (Version None)
Quarter: 2008Q2

REPORT INFORMATION
  Report Type: 
  Country: None (occurrence: None)
  Receive Date: 20080319
  Receipt Date: 20071205
  Transmission Date: 20081010
  Serious: Yes (Other)
  Sender: FDA-Public Use
  Company Number: US-WYE-H01584107

PATIENT
  Age: 40 Year
  Sex: Female

DRUGS (2)
  1. LYBREL [Suspect]
     Indication: MENORRHAGIA
     Dosage: SEE IMAGE
     Route: 048
     Dates: start: 20071001, end: 20071001
  2. LYBREL [Suspect]
     Indication: MENORRHAGIA
     Dosage: SEE IMAGE
     Route: 048
     Dates: start: 20071001

REACTIONS (7)
  - BLOOD PRESSURE INCREASED [None]
  - DRUG INEFFECTIVE [None]
  - INAPPROPRIATE SCHEDULE OF DRUG ADMINISTRATION [None]
  - NERVOUSNESS [None]
  - OVERDOSE [None]
  - VAGINAL HAEMORRHAGE [None]
  - VAGINAL LESION [None]
